FAERS Safety Report 17709624 (Version 1)
Quarter: 2020Q2

REPORT INFORMATION
  Report Type: Spontaneous
  Country: DE (occurrence: DE)
  Receive Date: 20200427
  Receipt Date: 20200427
  Transmission Date: 20200714
  Serious: Yes (Hospitalization, Congenital Anomaly, Other)
  Sender: FDA-Public Use
  Company Number: DE-TEVA-2020-DE-1226790

PATIENT
  Age: 25 Day
  Sex: Male
  Weight: 3.5 kg

DRUGS (1)
  1. PREGABALIN. [Suspect]
     Active Substance: PREGABALIN
     Indication: GENERALISED ANXIETY DISORDER
     Route: 064
     Dates: start: 2018, end: 2020

REACTIONS (2)
  - Foetal exposure during pregnancy [Unknown]
  - Pyloric stenosis [Recovering/Resolving]

NARRATIVE: CASE EVENT DATE: 20200406
